FAERS Safety Report 25569175 (Version 1)
Quarter: 2025Q3

REPORT INFORMATION
  Report Type: Spontaneous
  Country: US (occurrence: US)
  Receive Date: 20250716
  Receipt Date: 20250716
  Transmission Date: 20251020
  Serious: No
  Sender: NOVO NORDISK
  Company Number: US-NOVOPROD-1303931

PATIENT
  Sex: Male

DRUGS (3)
  1. OZEMPIC [Suspect]
     Active Substance: SEMAGLUTIDE
     Indication: Type 2 diabetes mellitus
     Dosage: 0.5MG WEEKLY
     Route: 058
     Dates: start: 202310
  2. OZEMPIC [Suspect]
     Active Substance: SEMAGLUTIDE
     Indication: Hepatic steatosis
  3. NovoFine Plus (32G) [Concomitant]
     Indication: Device therapy
     Route: 058
     Dates: start: 202310

REACTIONS (9)
  - Hereditary disorder [Unknown]
  - Inappropriate schedule of product administration [Unknown]
  - Wrong technique in product usage process [Unknown]
  - Device leakage [Unknown]
  - Injection site pain [Recovered/Resolved]
  - Hunger [Unknown]
  - Liquid product physical issue [Unknown]
  - Product communication issue [Unknown]
  - Device malfunction [Unknown]
